FAERS Safety Report 8741663 (Version 3)
Quarter: 2013Q1

REPORT INFORMATION
  Report Type: Spontaneous
  Country: US (occurrence: US)
  Receive Date: 20120824
  Receipt Date: 20121119
  Transmission Date: 20140127
  Serious: Yes (Life-Threatening)
  Sender: FDA-Public Use
  Company Number: US-009507513-1208USA009086

PATIENT
  Sex: Female
  Weight: 70.3 kg

DRUGS (3)
  1. ASMANEX TWISTHALER [Suspect]
     Indication: ASTHMA
     Dosage: 220 MICROGRAM, BID
     Dates: start: 201203, end: 201206
  2. ASMANEX TWISTHALER [Suspect]
     Dosage: UNK, QD
     Dates: start: 201206
  3. ASMANEX TWISTHALER [Suspect]
     Dosage: UNK
     Dates: start: 20120808

REACTIONS (3)
  - Somnolence [Recovering/Resolving]
  - Breast swelling [Recovering/Resolving]
  - Headache [Recovering/Resolving]
